FAERS Safety Report 12443421 (Version 1)
Quarter: 2016Q2

REPORT INFORMATION
  Report Type: Spontaneous
  Country: BR (occurrence: BR)
  Receive Date: 20160607
  Receipt Date: 20160607
  Transmission Date: 20160815
  Serious: Yes (Hospitalization)
  Sender: FDA-Public Use
  Company Number: BR-JNJFOC-20160603501

PATIENT
  Age: 57 Year
  Sex: Male

DRUGS (2)
  1. XARELTO [Suspect]
     Active Substance: RIVAROXABAN
     Indication: ANGIOPLASTY
     Route: 048
     Dates: start: 201601, end: 20160523
  2. XARELTO [Suspect]
     Active Substance: RIVAROXABAN
     Indication: STENT PLACEMENT
     Route: 048
     Dates: start: 201601, end: 20160523

REACTIONS (4)
  - Therapeutic product ineffective [Unknown]
  - Off label use [Unknown]
  - Vascular occlusion [Unknown]
  - Chest pain [Unknown]

NARRATIVE: CASE EVENT DATE: 20160521
